FAERS Safety Report 7742657-3 (Version None)
Quarter: 2011Q3

REPORT INFORMATION
  Report Type: 
  Country: None (occurrence: None)
  Receive Date: 20110912
  Receipt Date: 20110906
  Transmission Date: 20111222
  Serious: Yes (Life-Threatening, Hospitalization, Other)
  Sender: FDA-Public Use
  Company Number: BR-ASTRAZENECA-2011SE48894

PATIENT
  Age: 11559 Day
  Sex: Male

DRUGS (3)
  1. VANDETANIB [Suspect]
     Indication: THYROID CANCER
     Route: 048
     Dates: start: 20110726, end: 20110817
  2. DIPIRONA SODICA [Concomitant]
     Indication: CHEST PAIN
     Route: 048
     Dates: start: 20110813, end: 20110813
  3. LEVOTHYROXINE SODIUM [Concomitant]
     Indication: THYROIDECTOMY
     Route: 048

REACTIONS (1)
  - CHEST PAIN [None]
